FAERS Safety Report 9438741 (Version 3)
Quarter: 2013Q3

REPORT INFORMATION
  Report Type: Spontaneous
  Country: US (occurrence: US)
  Receive Date: 20130802
  Receipt Date: 20130919
  Transmission Date: 20140515
  Serious: Yes (Death)
  Sender: FDA-Public Use
  Company Number: US-CELGENEUS-163-21880-13074687

PATIENT
  Age: 59 Year
  Sex: Female

DRUGS (11)
  1. REVLIMID [Suspect]
     Indication: PLASMA CELL MYELOMA
     Dosage: 25 MILLIGRAM
     Route: 048
     Dates: start: 20130701, end: 20130713
  2. METOPROLOL [Concomitant]
     Indication: HYPERTENSION
     Dosage: 200 MILLIGRAM
     Route: 048
  3. NOVOLIN [Concomitant]
     Indication: DIABETES MELLITUS
     Dosage: 3 IU (INTERNATIONAL UNIT)
     Route: 058
  4. NOVOLIN [Concomitant]
     Dosage: 31 UNITS
     Route: 058
  5. NORVASC [Concomitant]
     Indication: HYPERTENSION
     Dosage: 10 MILLIGRAM
     Route: 048
  6. LISINOPRIL [Concomitant]
     Indication: HYPERTENSION
     Dosage: 20 - 25MG
     Route: 048
  7. VICODIN [Concomitant]
     Indication: PAIN
     Dosage: 5/325
     Route: 048
     Dates: start: 20130709
  8. CITALOPRAM [Concomitant]
     Indication: PRODUCT USED FOR UNKNOWN INDICATION
     Dosage: 40 MILLIGRAM
     Route: 065
  9. DEXAMETHASONE [Concomitant]
     Indication: PRODUCT USED FOR UNKNOWN INDICATION
     Dosage: 8 MILLIGRAM
     Route: 065
  10. PRAVASTATIN [Concomitant]
     Indication: PRODUCT USED FOR UNKNOWN INDICATION
     Dosage: 40 MILLIGRAM
     Route: 065
  11. TRAZODONE [Concomitant]
     Indication: PRODUCT USED FOR UNKNOWN INDICATION
     Dosage: 50 MILLIGRAM
     Route: 065

REACTIONS (1)
  - Cardiac arrest [Fatal]
